FAERS Safety Report 8809450 (Version 1)
Quarter: 2012Q4

REPORT INFORMATION
  Report Type: 
  Country: BR (occurrence: BR)
  Receive Date: 20120926
  Receipt Date: 20120926
  Transmission Date: 20130627
  Serious: Yes (Other)
  Sender: FDA-Public Use
  Company Number: BR-ROCHE-1136058

PATIENT
  Age: 54 Year
  Sex: Female

DRUGS (4)
  1. OMALIZUMAB [Suspect]
     Indication: PRODUCT USED FOR UNKNOWN INDICATION
     Route: 058
     Dates: start: 200908
  2. FORASEQ [Suspect]
     Indication: PRODUCT USED FOR UNKNOWN INDICATION
     Dosage: 24 mcg/1600 mcg daily
     Route: 065
  3. MOMETASONE [Concomitant]
  4. PANTOPRAZOLE [Concomitant]
     Route: 065

REACTIONS (10)
  - Emphysema [Recovering/Resolving]
  - Depression [Recovering/Resolving]
  - Osteopenia [Recovering/Resolving]
  - Gastrooesophageal reflux disease [Recovering/Resolving]
  - Sleep disorder [Recovering/Resolving]
  - Asthma [Recovering/Resolving]
  - Sputum abnormal [Recovering/Resolving]
  - Rhinitis allergic [Recovering/Resolving]
  - Inflammation [Recovering/Resolving]
  - Blood immunoglobulin E increased [Recovering/Resolving]
